FAERS Safety Report 25915020 (Version 1)
Quarter: 2025Q4

REPORT INFORMATION
  Report Type: Spontaneous
  Country: US (occurrence: US)
  Receive Date: 20251013
  Receipt Date: 20251013
  Transmission Date: 20260117
  Serious: Yes (Life-Threatening, Hospitalization)
  Sender: AMGEN
  Company Number: US-AMGEN-USASP2025200316

PATIENT
  Age: 74 Year
  Sex: Male

DRUGS (2)
  1. PREDNISONE [Suspect]
     Active Substance: PREDNISONE
     Indication: Immune-mediated lung disease
     Dosage: 60 MILLIGRAM, QD
     Route: 065
  2. PREDNISONE [Suspect]
     Active Substance: PREDNISONE
     Dosage: 50 MILLIGRAM, QD
     Route: 065

REACTIONS (4)
  - Acute pulmonary oedema [Unknown]
  - Acute respiratory failure [Unknown]
  - Immune-mediated myocarditis [Recovering/Resolving]
  - Hypotension [Unknown]
